FAERS Safety Report 4601083-6 (Version None)
Quarter: 2005Q1

REPORT INFORMATION
  Report Type: 
  Country: None (occurrence: None)
  Receive Date: 20050308
  Receipt Date: 20050224
  Transmission Date: 20050727
  Serious: Yes (Other)
  Sender: FDA-Public Use
  Company Number: JP-JNJFOC-20040300526

PATIENT
  Sex: Female
  Weight: 50 kg

DRUGS (11)
  1. REMICADE [Suspect]
     Dosage: ONE FIFTH OF DOSE WAS ADMINISTERED; 3MG/KG
     Route: 041
  2. REMICADE [Suspect]
     Route: 041
  3. REMICADE [Suspect]
     Indication: RHEUMATOID ARTHRITIS
     Route: 041
  4. RHEUMATREX [Concomitant]
     Route: 065
  5. RHEUMATREX [Concomitant]
     Route: 065
  6. RHEUMATREX [Concomitant]
     Route: 065
  7. PREDNISOLONE [Concomitant]
     Route: 049
  8. AZULFIDINE EN-TABS [Concomitant]
     Route: 049
  9. LOXONINE [Concomitant]
     Route: 049
  10. VOLTAREN [Concomitant]
     Route: 054
  11. AZULENE GLUTAMINE [Concomitant]
     Route: 049

REACTIONS (2)
  - CHILLS [None]
  - PYREXIA [None]
